FAERS Safety Report 7255650-4 (Version None)
Quarter: 2011Q1

REPORT INFORMATION
  Report Type: 
  Country: None (occurrence: None)
  Receive Date: 20110129
  Receipt Date: 20100830
  Transmission Date: 20110831
  Serious: No
  Sender: FDA-Public Use
  Company Number: US-ABBOTT-10P-163-0666914-00

PATIENT
  Age: 26 Year
  Sex: Female

DRUGS (3)
  1. TRAMADOL HCL [Concomitant]
     Indication: PRODUCT USED FOR UNKNOWN INDICATION
  2. HUMIRA [Suspect]
     Indication: CROHN'S DISEASE
     Dates: start: 20100401
  3. ORTHOTRYCYCLINE [Concomitant]
     Indication: PRODUCT USED FOR UNKNOWN INDICATION

REACTIONS (6)
  - INJECTION SITE PAIN [None]
  - INJECTION SITE ERYTHEMA [None]
  - INJECTION SITE NODULE [None]
  - INJECTION SITE WARMTH [None]
  - NASOPHARYNGITIS [None]
  - INJECTION SITE HAEMATOMA [None]
